FAERS Safety Report 14605453 (Version 2)
Quarter: 2018Q2

REPORT INFORMATION
  Report Type: Spontaneous
  Country: GB (occurrence: GB)
  Receive Date: 20180306
  Receipt Date: 20180406
  Transmission Date: 20180711
  Serious: Yes (Hospitalization)
  Sender: FDA-Public Use
  Company Number: GB-B. BRAUN MEDICAL INC.-2043098

PATIENT
  Age: 47 Year
  Sex: Female
  Weight: 80 kg

DRUGS (6)
  1. FELODIPINE. [Suspect]
     Active Substance: FELODIPINE
     Route: 048
     Dates: start: 20170711, end: 20171004
  2. BLINDED EPOETIN ALFA [Suspect]
     Active Substance: ERYTHROPOIETIN
     Route: 048
     Dates: start: 20170802
  3. BLINDED DAPRODUSTAT [Suspect]
     Active Substance: DAPRODUSTAT
     Dates: start: 20170802
  4. BLINDED DARBEPOETIN ALFA [Suspect]
     Active Substance: DARBEPOETIN ALFA
     Route: 048
     Dates: start: 20170802
  5. FLUCLOXICILLIN SODIUM [Suspect]
     Active Substance: FLUCLOXACILLIN
     Route: 042
     Dates: start: 20171221, end: 20171226
  6. METRONIDAZOLE INJECTION USP (5 MG/ML) IN PAB? PLASTIC CONTAINER [Suspect]
     Active Substance: METRONIDAZOLE
     Indication: CELLULITIS
     Route: 042
     Dates: start: 20171220, end: 20171228

REACTIONS (3)
  - Lower respiratory tract infection [None]
  - Rhinovirus infection [None]
  - Clostridium difficile infection [None]
